FAERS Safety Report 5881639-3 (Version None)
Quarter: 2008Q3

REPORT INFORMATION
  Report Type: 
  Country: None (occurrence: None)
  Receive Date: 20080912
  Receipt Date: 20080707
  Transmission Date: 20090109
  Serious: No
  Sender: FDA-Public Use
  Company Number: US-ABBOTT-08P-163-0461341-00

PATIENT
  Sex: Male
  Weight: 92.616 kg

DRUGS (4)
  1. HUMIRA [Suspect]
     Indication: PSORIASIS
     Route: 058
     Dates: start: 20080401
  2. HUMIRA [Suspect]
     Indication: PSORIATIC ARTHROPATHY
  3. METHOTREXATE [Concomitant]
     Indication: PSORIASIS
     Route: 048
     Dates: start: 20080501
  4. METHOTREXATE [Concomitant]
     Indication: PSORIATIC ARTHROPATHY

REACTIONS (4)
  - DRUG DOSE OMISSION [None]
  - INJECTION SITE REACTION [None]
  - OEDEMA PERIPHERAL [None]
  - SKIN WARM [None]
